FAERS Safety Report 6962158-X (Version None)
Quarter: 2010Q3

REPORT INFORMATION
  Report Type: 
  Country: None (occurrence: None)
  Receive Date: 20100902
  Receipt Date: 20100823
  Transmission Date: 20110219
  Serious: Yes (Hospitalization)
  Sender: FDA-Public Use
  Company Number: GB-ELI_LILLY_AND_COMPANY-GB201008000224

PATIENT
  Sex: Male
  Weight: 84 kg

DRUGS (8)
  1. GEMCITABINE HCL [Suspect]
     Indication: NON-SMALL CELL LUNG CANCER
     Dosage: 1976 MG, UNKNOWN
     Route: 065
     Dates: start: 20100609, end: 20100721
  2. GEMCITABINE HCL [Suspect]
     Dosage: UNK, UNK
     Dates: start: 20100810
  3. CISPLATIN [Suspect]
     Indication: NON-SMALL CELL LUNG CANCER
     Dosage: 115 MG, UNKNOWN
     Route: 065
     Dates: start: 20100609, end: 20100714
  4. CISPLATIN [Suspect]
     Dates: start: 20100810
  5. ALBUTEROL SULFATE AUTOHALER [Concomitant]
     Dosage: 2.5 MG, DAILY (1/D)
     Route: 055
     Dates: start: 20100730
  6. ALBUTEROL SULFATE AUTOHALER [Concomitant]
     Dosage: 2 PUFFS
     Route: 055
  7. TRANEXAMIC ACID [Concomitant]
     Indication: HAEMOPTYSIS
     Dosage: 500 MG, UNK
     Dates: start: 20100407
  8. VITAMIN B-12 [Concomitant]
     Dosage: UNK, OTHER
     Dates: start: 20050102

REACTIONS (1)
  - SEPSIS [None]
